FAERS Safety Report 7684281-7 (Version None)
Quarter: 2011Q3

REPORT INFORMATION
  Report Type: 
  Country: None (occurrence: None)
  Receive Date: 20110815
  Receipt Date: 20110801
  Transmission Date: 20111222
  Serious: No
  Sender: FDA-Public Use
  Company Number: US-B.I. PHARMACEUTICALS,INC./RIDGEFIELD-2011-BP-18913BP

PATIENT
  Sex: Female

DRUGS (3)
  1. PROPAFENONE HCL [Concomitant]
     Indication: ATRIAL FIBRILLATION
     Dates: end: 20110715
  2. PRADAXA [Suspect]
     Indication: ATRIAL FIBRILLATION
     Dosage: 300 MG
     Route: 048
     Dates: start: 20110620
  3. METOPROLOL TARTRATE [Concomitant]
     Indication: HYPERTENSION

REACTIONS (3)
  - INSOMNIA [None]
  - HYPERHIDROSIS [None]
  - ASTHENIA [None]
